FAERS Safety Report 9460390 (Version 1)
Quarter: 2013Q3

REPORT INFORMATION
  Report Type: Spontaneous
  Country: DE (occurrence: DE)
  Receive Date: 20130815
  Receipt Date: 20130815
  Transmission Date: 20140515
  Serious: Yes (Other)
  Sender: FDA-Public Use
  Company Number: DE-PFIZER INC-2013236359

PATIENT
  Age: 73 Year
  Sex: Female

DRUGS (2)
  1. LYRICA [Suspect]
     Indication: BACK PAIN
     Dosage: 50 MG, 3X/DAY
  2. LYRICA [Suspect]
     Dosage: 75 MG, 2X/DAY
     Dates: end: 201308

REACTIONS (11)
  - Breast pain [Unknown]
  - Breast enlargement [Unknown]
  - Chest pain [Unknown]
  - Breast swelling [Unknown]
  - Increased appetite [Unknown]
  - Irritability [Unknown]
  - Speech disorder [Unknown]
  - Oedema peripheral [Unknown]
  - Weight increased [Unknown]
  - Restlessness [Unknown]
  - Tremor [Unknown]
